FAERS Safety Report 9127401 (Version 1)
Quarter: 2013Q1

REPORT INFORMATION
  Report Type: Spontaneous
  Country: US (occurrence: US)
  Receive Date: 20130228
  Receipt Date: 20130228
  Transmission Date: 20140127
  Serious: No
  Sender: FDA-Public Use
  Company Number: US-GLAXOSMITHKLINE-A0973236A

PATIENT
  Age: 39 Year
  Sex: Female

DRUGS (4)
  1. LAMICTAL [Suspect]
     Indication: BIPOLAR DISORDER
     Dosage: 25MG PER DAY
     Route: 048
     Dates: start: 2005
  2. ALEVE [Concomitant]
  3. SOMA [Concomitant]
  4. FOLIC ACID [Concomitant]

REACTIONS (6)
  - Paraesthesia [Not Recovered/Not Resolved]
  - Myalgia [Unknown]
  - Dysgeusia [Unknown]
  - Dry mouth [Unknown]
  - Paraesthesia [Unknown]
  - Therapeutic response unexpected [Unknown]
